FAERS Safety Report 9149225 (Version 2)
Quarter: 2013Q2

REPORT INFORMATION
  Report Type: Spontaneous
  Country: DE (occurrence: None)
  Receive Date: 20130131
  Receipt Date: 20130417
  Transmission Date: 20140414
  Serious: Yes (Hospitalization)
  Sender: FDA-Public Use
  Company Number: VAL_01356_2013

PATIENT
  Age: 60 Year
  Sex: Female
  Weight: 81.4 kg

DRUGS (7)
  1. METOPROLOL (METOPROLOL) [Suspect]
     Indication: HYPERTENSION
     Route: 048
     Dates: end: 20121219
  2. AMLODIPINE (AMLODIPINE) [Suspect]
     Indication: HYPERTENSION
     Route: 048
  3. CERTICAN [Suspect]
     Indication: LIVER TRANSPLANT
     Dosage: 1 MG BID, [REGIMEN #1] ORAL
     Route: 048
     Dates: start: 20121016, end: 20121219
  4. TACROLIMUS [Suspect]
     Indication: LIVER TRANSPLANT
     Dosage: 3 MG BID, [REGIMEN #1] ORAL
     Route: 048
     Dates: start: 20121016, end: 20121219
  5. PANTOPRAZOL [Concomitant]
  6. PREDNISOLONE [Concomitant]
  7. VALGANCICLOVIR [Concomitant]

REACTIONS (9)
  - Liver function test abnormal [None]
  - Diarrhoea [None]
  - Hepatitis C [None]
  - Fall [None]
  - Haematoma [None]
  - Brain contusion [None]
  - Confusional state [None]
  - Hepatic cirrhosis [None]
  - Vertigo [None]
